FAERS Safety Report 16298868 (Version 1)
Quarter: 2019Q2

REPORT INFORMATION
  Report Type: Spontaneous
  Country: SK (occurrence: SK)
  Receive Date: 20190510
  Receipt Date: 20190510
  Transmission Date: 20190711
  Serious: Yes (Hospitalization)
  Sender: FDA-Public Use
  Company Number: SK-TEVA-2019-SK-1047220

PATIENT
  Age: 85 Year
  Sex: Female

DRUGS (7)
  1. CIPLOX [Suspect]
     Active Substance: CIPROFLOXACIN
     Route: 048
     Dates: start: 201902
  2. FURON [Concomitant]
     Active Substance: FUROSEMIDE
  3. CIPHIN [Suspect]
     Active Substance: BENZYL ALCOHOL\CIPROFLOXACIN HYDROCHLORIDE\HYDROCORTISONE
     Indication: INFLUENZA
     Route: 048
     Dates: start: 20190215, end: 20190221
  4. CORVITOL [Concomitant]
     Active Substance: METOPROLOL
     Route: 048
  5. VEROSPIRON [Concomitant]
     Active Substance: SPIRONOLACTONE
  6. LIXIANA [Concomitant]
     Active Substance: EDOXABAN TOSYLATE
     Route: 048
  7. CIPROFLOXACIN. [Suspect]
     Active Substance: CIPROFLOXACIN

REACTIONS (4)
  - Muscular weakness [Not Recovered/Not Resolved]
  - Gait disturbance [Not Recovered/Not Resolved]
  - Oedema peripheral [Not Recovered/Not Resolved]
  - Sleep disorder [Not Recovered/Not Resolved]
